FAERS Safety Report 8394433-9 (Version None)
Quarter: 2012Q2

REPORT INFORMATION
  Report Type: 
  Country: None (occurrence: None)
  Receive Date: 20120530
  Receipt Date: 20120524
  Transmission Date: 20120825
  Serious: Yes (Other)
  Sender: FDA-Public Use
  Company Number: PHHY2012AR045282

PATIENT
  Sex: Female

DRUGS (1)
  1. DIOVAN [Suspect]
     Indication: HYPERTENSION
     Dosage: 160 MG, DAILY

REACTIONS (5)
  - ASTHENIA [None]
  - BLOOD PRESSURE INCREASED [None]
  - BRONCHOSPASM [None]
  - CHEST DISCOMFORT [None]
  - HEART RATE INCREASED [None]
